FAERS Safety Report 5398681-1 (Version None)
Quarter: 2007Q3

REPORT INFORMATION
  Report Type: 
  Country: None (occurrence: None)
  Receive Date: 20070726
  Receipt Date: 20061129
  Transmission Date: 20080115
  Serious: No
  Sender: FDA-Public Use
  Company Number: US-AMGEN-KDL202246

PATIENT
  Sex: Male
  Weight: 105 kg

DRUGS (3)
  1. PROCRIT [Suspect]
     Indication: RENAL FAILURE CHRONIC
     Route: 042
  2. IRON [Concomitant]
     Indication: RENAL FAILURE CHRONIC
     Route: 042
  3. UNSPECIFIED MEDICATION [Concomitant]

REACTIONS (3)
  - DRUG INEFFECTIVE [None]
  - GASTROINTESTINAL HAEMORRHAGE [None]
  - RETICULOCYTE COUNT INCREASED [None]
